FAERS Safety Report 4879817-5 (Version None)
Quarter: 2006Q1

REPORT INFORMATION
  Report Type: 
  Country: None (occurrence: None)
  Receive Date: 20060111
  Receipt Date: 20051228
  Transmission Date: 20060701
  Serious: Yes (Other)
  Sender: FDA-Public Use
  Company Number: 144143USA

PATIENT
  Age: 35 Year
  Sex: Male

DRUGS (1)
  1. COPAXONE [Suspect]
     Indication: MULTIPLE SCLEROSIS
     Dosage: 20 MILLIGRAM QD SUBCUTANEOUS
     Route: 058
     Dates: start: 20031115

REACTIONS (5)
  - BLISTER [None]
  - BURNING SENSATION [None]
  - INJECTION SITE NECROSIS [None]
  - WOUND [None]
  - WRONG TECHNIQUE IN DRUG USAGE PROCESS [None]
